FAERS Safety Report 26017729 (Version 1)
Quarter: 2025Q4

REPORT INFORMATION
  Report Type: Spontaneous
  Country: EU (occurrence: EU)
  Receive Date: 20251110
  Receipt Date: 20251110
  Transmission Date: 20260118
  Serious: Yes (Hospitalization)
  Sender: Alora Pharma
  Company Number: EU-ACELLA PHARMACEUTICALS, LLC-2025ALO02600

PATIENT
  Age: 59 Year
  Sex: Male

DRUGS (10)
  1. PHENYTOIN SODIUM [Suspect]
     Active Substance: PHENYTOIN SODIUM
     Dosage: DAYS 19 THROUGH DAY 25
     Route: 042
  2. DOPAMINE [Concomitant]
     Active Substance: DOPAMINE HYDROCHLORIDE
     Dosage: DAYS 1 THROUGH 27
     Route: 042
  3. OMEPRAZOLE [Concomitant]
     Active Substance: OMEPRAZOLE
     Dosage: DAYS 1 THROUGH 20
     Route: 042
  4. BUDESONIDE [Concomitant]
     Active Substance: BUDESONIDE
     Dosage: DAYS 1 THROUGH 30
  5. LEVETIRACETAM [Concomitant]
     Active Substance: LEVETIRACETAM
     Indication: Seizure
     Dosage: DAYS 1 THROUGH 30
     Route: 042
  6. FUROSEMIDE [Concomitant]
     Active Substance: FUROSEMIDE
     Dosage: DAYS 6 THROUGH 30
     Route: 042
  7. DEXAMETHASONE [Concomitant]
     Active Substance: DEXAMETHASONE
     Dosage: DAYS 7 THOUGH 27
     Route: 042
  8. ENOXAPARIN [Concomitant]
     Active Substance: ENOXAPARIN
     Dosage: DAYS 7 THROUGH 24
     Route: 058
  9. TIGECYCLINE [Concomitant]
     Active Substance: TIGECYCLINE
     Dosage: DAYS 20 THROUGH 30
     Route: 042
  10. AMIODARONE [Concomitant]
     Active Substance: AMIODARONE
     Dosage: DAYS 18 THROUGH 30
     Route: 042

REACTIONS (2)
  - Mydriasis [Recovered/Resolved]
  - Toxicity to various agents [Recovered/Resolved]
